FAERS Safety Report 5487834-X (Version None)
Quarter: 2007Q4

REPORT INFORMATION
  Report Type: 
  Country: None (occurrence: None)
  Receive Date: 20071017
  Receipt Date: 20071004
  Transmission Date: 20080405
  Serious: Yes (Hospitalization)
  Sender: FDA-Public Use
  Company Number: US-KINGPHARMUSA00001-K200701291

PATIENT

DRUGS (6)
  1. ALTACE [Suspect]
     Indication: HYPERTENSION
     Dosage: 1 U, QD
     Route: 048
  2. LASIX [Suspect]
     Indication: CARDIAC FAILURE
     Dosage: 40 MG, QD
     Route: 048
  3. PREVISCAN /00789001/ [Suspect]
     Indication: THROMBOSIS
     Dosage: 25 MG, QD
     Route: 048
     Dates: end: 20061013
  4. PREVISCAN /00789001/ [Suspect]
     Dates: start: 20061015
  5. ALDACTONE [Suspect]
     Indication: CARDIAC FAILURE
     Dosage: 1 U FILM-COATED TABLET
     Route: 048
  6. ELISOR [Suspect]
     Indication: HYPERCHOLESTEROLAEMIA
     Dosage: 1 U TABLET,QD
     Route: 048

REACTIONS (3)
  - GASTRIC ULCER [None]
  - HYPOTENSION [None]
  - RECTAL HAEMORRHAGE [None]
